FAERS Safety Report 10927308 (Version 2)
Quarter: 2015Q2

REPORT INFORMATION
  Report Type: Spontaneous
  Country: KR (occurrence: KR)
  Receive Date: 20150318
  Receipt Date: 20150417
  Transmission Date: 20150821
  Serious: Yes (Death, Hospitalization)
  Sender: FDA-Public Use
  Company Number: KR-009507513-1503KOR006775

PATIENT
  Age: 70 Year
  Sex: Male
  Weight: 74 kg

DRUGS (9)
  1. NORZYME [Concomitant]
     Indication: DYSPEPSIA
     Dosage: UNK UNK, TID
     Route: 048
     Dates: start: 20141120
  2. PORTALAK [Concomitant]
     Indication: CONSTIPATION
     Dosage: UNK, QD
     Route: 048
     Dates: start: 20141121
  3. BRIDION [Suspect]
     Active Substance: SUGAMMADEX
     Indication: NEUROMUSCULAR BLOCKADE REVERSAL
     Dosage: 148 MG, ONCE
     Route: 042
     Dates: start: 20141120, end: 20141120
  4. ROCURONIUM BROMIDE. [Suspect]
     Active Substance: ROCURONIUM BROMIDE
     Indication: HYPOTONIA
     Dosage: 50 MG, ONCE
     Route: 042
     Dates: start: 20141120, end: 20141120
  5. TRIAXON [Concomitant]
     Indication: INFECTION PROPHYLAXIS
     Dosage: FREQUENCY: 1
     Dates: start: 20141120
  6. SELENASE [Concomitant]
     Indication: SELENIUM DEFICIENCY
  7. SELENASE [Concomitant]
     Indication: CIRCULATORY COLLAPSE
     Dosage: UNK UNK, BID
     Dates: start: 20141120, end: 20141127
  8. TIROPA (TIROPRAMIDE HYDROCHLORIDE) [Concomitant]
     Indication: DYSURIA
     Dosage: UNK UNK, TID
     Route: 048
     Dates: start: 20141122
  9. DEXILANT [Concomitant]
     Active Substance: DEXLANSOPRAZOLE
     Indication: OESOPHAGITIS
     Dosage: 30 MG, QD
     Route: 048
     Dates: start: 20141113, end: 20141123

REACTIONS (3)
  - Respiratory disorder [Fatal]
  - Abdominal pain [Recovered/Resolved]
  - Adverse event [Recovered/Resolved]

NARRATIVE: CASE EVENT DATE: 20141209
